FAERS Safety Report 23723221 (Version 1)
Quarter: 2024Q2

REPORT INFORMATION
  Report Type: Spontaneous
  Country: US (occurrence: US)
  Receive Date: 20240409
  Receipt Date: 20240409
  Transmission Date: 20240716
  Serious: No
  Sender: FDA-Public Use
  Company Number: US-HISAMITSU-2023-US-023823

PATIENT
  Age: 72 Year
  Sex: Female
  Weight: 67.59 kg

DRUGS (7)
  1. COREG [Concomitant]
     Active Substance: CARVEDILOL
  2. LOSARTAN [Concomitant]
     Active Substance: LOSARTAN
  3. LEVOXYL [Concomitant]
     Active Substance: LEVOTHYROXINE SODIUM
  4. VITAMIN D3 [Concomitant]
     Active Substance: CHOLECALCIFEROL
  5. ZINC [Concomitant]
     Active Substance: PYRITHIONE ZINC\ZINC\ZINC CHLORIDE
  6. POTASSIUM [Concomitant]
     Active Substance: POTASSIUM
  7. SALONPAS PAIN RELIEF [Suspect]
     Active Substance: MENTHOL\METHYL SALICYLATE
     Indication: Analgesic therapy
     Dosage: 1 PATCH TO SHOULDER PER DAY, INTERMITTENTLY
     Route: 061
     Dates: start: 20230601, end: 20230725

REACTIONS (3)
  - Application site pain [Recovering/Resolving]
  - Application site burn [Recovering/Resolving]
  - Application site erythema [Recovering/Resolving]

NARRATIVE: CASE EVENT DATE: 20230725
